FAERS Safety Report 5018839-0 (Version None)
Quarter: 2006Q2

REPORT INFORMATION
  Report Type: 
  Country: None (occurrence: None)
  Receive Date: 20060530
  Receipt Date: 20060518
  Transmission Date: 20061013
  Serious: Yes (Hospitalization, Other)
  Sender: FDA-Public Use
  Company Number: 163-20785-06030345

PATIENT
  Age: 73 Year
  Sex: Female

DRUGS (14)
  1. THALOMID [Suspect]
     Indication: MULTIPLE MYELOMA
     Dosage: 200 MG DAILY, ORAL; 100 MG, DAILY, ORAL
     Route: 048
     Dates: start: 20051201, end: 20060201
  2. THALOMID [Suspect]
     Indication: MULTIPLE MYELOMA
     Dosage: 200 MG DAILY, ORAL; 100 MG, DAILY, ORAL
     Route: 048
     Dates: start: 20060201
  3. DEXAMETHASONE [Suspect]
     Indication: MULTIPLE MYELOMA
  4. AREDIA [Concomitant]
  5. BENICAR [Concomitant]
  6. ASPIRIN [Concomitant]
  7. ATENOLOL [Concomitant]
  8. PROTONIX [Concomitant]
  9. POTASSIUM (POTASSIUM) [Concomitant]
  10. FLORINEF [Concomitant]
  11. KYTRIL [Concomitant]
  12. PREDNISONE TAB [Concomitant]
  13. LASIX [Concomitant]
  14. MULTIVITAMIN [Concomitant]

REACTIONS (10)
  - ASTHENIA [None]
  - FATIGUE [None]
  - HAEMOTHORAX [None]
  - NAUSEA [None]
  - NEUROPATHY [None]
  - OEDEMA [None]
  - PAIN [None]
  - RENAL FAILURE ACUTE [None]
  - URINE OUTPUT DECREASED [None]
  - WEIGHT INCREASED [None]
